FAERS Safety Report 18537640 (Version 1)
Quarter: 2020Q4

REPORT INFORMATION
  Report Type: Spontaneous
  Country: US (occurrence: US)
  Receive Date: 20201124
  Receipt Date: 20201124
  Transmission Date: 20210114
  Serious: No
  Sender: FDA-Public Use
  Company Number: US-BRISTOL-MYERS SQUIBB COMPANY-BMS-2020-099276

PATIENT
  Sex: Female

DRUGS (1)
  1. ORENCIA [Suspect]
     Active Substance: ABATACEPT
     Indication: RHEUMATOID ARTHRITIS
     Dosage: UNK
     Route: 058

REACTIONS (6)
  - Diarrhoea [Unknown]
  - Dyspnoea [Unknown]
  - Hypoaesthesia [Unknown]
  - Skin hypopigmentation [Unknown]
  - Hypersensitivity [Unknown]
  - Rhinorrhoea [Unknown]
